FAERS Safety Report 7864590-9 (Version None)
Quarter: 2011Q4

REPORT INFORMATION
  Report Type: 
  Country: None (occurrence: None)
  Receive Date: 20111028
  Receipt Date: 20101229
  Transmission Date: 20120403
  Serious: No
  Sender: FDA-Public Use
  Company Number: US-GLAXOSMITHKLINE-A0902018A

PATIENT
  Age: 24 Year
  Sex: Female

DRUGS (4)
  1. SYNTHROID [Concomitant]
  2. PROTONIX [Concomitant]
  3. IMITREX [Suspect]
     Indication: MIGRAINE
     Dosage: 20MG PER DAY
     Route: 045
     Dates: start: 20101228
  4. ZOLOFT [Concomitant]

REACTIONS (3)
  - VOMITING [None]
  - MATERNAL EXPOSURE DURING PREGNANCY [None]
  - RASH [None]
